FAERS Safety Report 11967314 (Version 3)
Quarter: 2016Q1

REPORT INFORMATION
  Report Type: Report from Study
  Country: US (occurrence: US)
  Receive Date: 20160127
  Receipt Date: 20160229
  Transmission Date: 20160526
  Serious: No
  Sender: FDA-Public Use
  Company Number: US-AMGEN-USASL2016008224

PATIENT
  Age: 73 Year
  Sex: Female

DRUGS (1)
  1. ENBREL [Suspect]
     Active Substance: ETANERCEPT
     Indication: RHEUMATOID ARTHRITIS
     Dosage: 50 MG, QWK
     Route: 065
     Dates: start: 201511

REACTIONS (10)
  - Herpes zoster [Unknown]
  - Myalgia [Unknown]
  - Cheilitis [Unknown]
  - Injection site pain [Unknown]
  - Injection site laceration [Unknown]
  - Gait disturbance [Unknown]
  - Wrong technique in product usage process [Unknown]
  - Accidental exposure to product [Unknown]
  - Rash [Unknown]
  - Muscular weakness [Unknown]

NARRATIVE: CASE EVENT DATE: 201602
